FAERS Safety Report 26131337 (Version 1)
Quarter: 2025Q4

REPORT INFORMATION
  Report Type: Spontaneous
  Country: EU (occurrence: EU)
  Receive Date: 20251208
  Receipt Date: 20251208
  Transmission Date: 20260117
  Serious: Yes (Death)
  Sender: NOVARTIS
  Company Number: EU-002147023-NVSC2025HR187452

PATIENT
  Sex: Female

DRUGS (1)
  1. KISQALI [Suspect]
     Active Substance: RIBOCICLIB SUCCINATE
     Indication: Hormone receptor positive HER2 negative breast cancer
     Dosage: UNK
     Route: 065

REACTIONS (5)
  - Metastases to liver [Fatal]
  - Hormone receptor negative HER2 positive breast cancer [Fatal]
  - Malignant neoplasm progression [Fatal]
  - General physical health deterioration [Unknown]
  - Therapy non-responder [Unknown]
